FAERS Safety Report 7133675-7 (Version None)
Quarter: 2010Q4

REPORT INFORMATION
  Report Type: 
  Country: None (occurrence: None)
  Receive Date: 20101202
  Receipt Date: 20100615
  Transmission Date: 20110411
  Serious: Yes (Hospitalization)
  Sender: FDA-Public Use
  Company Number: PL-BAYER-201029307GPV

PATIENT

DRUGS (1)
  1. MIRENA [Suspect]
     Dosage: 20 A?G (DAILY DOSE), CONT, INTRA-UTERINE
     Route: 015
     Dates: start: 20090716, end: 20091005

REACTIONS (1)
  - DEVICE DISLOCATION [None]
